FAERS Safety Report 6164443-0 (Version None)
Quarter: 2009Q2

REPORT INFORMATION
  Report Type: 
  Country: None (occurrence: None)
  Receive Date: 20090421
  Receipt Date: 20090413
  Transmission Date: 20091009
  Serious: Yes (Death, Other)
  Sender: FDA-Public Use
  Company Number: CLOF-1000418

PATIENT
  Age: 72 Year
  Sex: Male
  Weight: 71.5 kg

DRUGS (7)
  1. CLOLAR [Suspect]
     Indication: ACUTE MYELOID LEUKAEMIA
     Dosage: 35 MG, QD, INTRAVENOUS
     Route: 042
     Dates: start: 20090128, end: 20090128
  2. GLYBURIDE [Concomitant]
  3. NORVASC [Concomitant]
  4. FLOMAX (MORNIFLUMATE) [Concomitant]
  5. ALLOPURINOL [Concomitant]
  6. DARVON [Concomitant]
  7. SEVERLAMER (SEVERLAMER) [Concomitant]

REACTIONS (3)
  - BLOOD POTASSIUM INCREASED [None]
  - BLOOD UREA NITROGEN/CREATININE RATIO INCREASED [None]
  - ELECTROLYTE IMBALANCE [None]
